FAERS Safety Report 8962772 (Version 1)
Quarter: 2012Q4

REPORT INFORMATION
  Report Type: 
  Country: DE (occurrence: DE)
  Receive Date: 20121213
  Receipt Date: 20121213
  Transmission Date: 20130627
  Serious: Yes (Other)
  Sender: FDA-Public Use
  Company Number: DE-PFIZER INC-2007305423

PATIENT
  Age: 44 Year
  Sex: Male

DRUGS (4)
  1. IBUPROFEN [Suspect]
     Dosage: 200 MG
     Route: 048
     Dates: start: 200611, end: 200611
  2. SULTAMICILLIN TOSYLATE [Suspect]
     Indication: BRONCHITIS
     Dosage: 2 COATED TABLETS
     Route: 048
     Dates: start: 20061106, end: 20061107
  3. UNSPECIFIED INGREDIENT [Suspect]
     Dosage: UNSPECIFIED
     Route: 048
  4. DEXTROMETHORPHAN HYDROBROMIDE\DOXYLAMINE SUCCINATE\EPHEDRINE SULFATE [Suspect]
     Dosage: 1 BOTTLE TWICE DAILY
     Route: 065
     Dates: start: 20061110

REACTIONS (12)
  - Myalgia [Not Recovered/Not Resolved]
  - Pain in extremity [Unknown]
  - Hallucination [Recovered/Resolved]
  - Aggression [Recovered/Resolved]
  - Agitation [Unknown]
  - Panophthalmitis [Recovered/Resolved]
  - Intraocular pressure increased [Recovered/Resolved]
  - Bacterial infection [Recovered/Resolved]
  - Confusional state [Unknown]
  - Sleep disorder [Recovered/Resolved]
  - Headache [Recovered/Resolved]
  - Hearing impaired [Not Recovered/Not Resolved]
